FAERS Safety Report 7725890-6 (Version None)
Quarter: 2011Q3

REPORT INFORMATION
  Report Type: 
  Country: None (occurrence: None)
  Receive Date: 20110902
  Receipt Date: 20110825
  Transmission Date: 20111222
  Serious: Yes (Hospitalization, Other)
  Sender: FDA-Public Use
  Company Number: US-JNJFOC-20110811938

PATIENT
  Age: 42 Year
  Sex: Male
  Weight: 138.71 kg

DRUGS (12)
  1. NEUTRA-PHOS [Concomitant]
     Indication: HYPOPHOSPHATAEMIA
     Route: 065
     Dates: start: 20110422, end: 20110708
  2. DOXORUBICIN HCL [Suspect]
     Indication: SARCOMA METASTATIC
     Route: 042
     Dates: end: 20110602
  3. METOPROLOL [Concomitant]
     Indication: HYPERTENSION
     Route: 065
     Dates: start: 20110416
  4. REGLAN [Concomitant]
     Indication: DECREASED APPETITE
     Route: 065
     Dates: start: 20110513
  5. PROTONIX [Concomitant]
     Indication: GASTROOESOPHAGEAL REFLUX DISEASE
     Route: 065
     Dates: start: 20110401
  6. ALL OTHER THERAPEUTIC PRODUCTS [Concomitant]
     Indication: STOMATITIS
     Route: 065
     Dates: start: 20110422
  7. TEMSIROLIMUS [Suspect]
     Indication: SARCOMA METASTATIC
     Route: 042
     Dates: start: 20110408, end: 20110608
  8. LISINOPRIL [Concomitant]
     Indication: HYPERTENSION
     Route: 065
     Dates: start: 20051114
  9. DOXORUBICIN HCL [Suspect]
     Indication: BONE SARCOMA
     Route: 042
     Dates: end: 20110602
  10. TEMSIROLIMUS [Suspect]
     Indication: BONE SARCOMA
     Route: 042
     Dates: start: 20110408, end: 20110608
  11. ZOFRAN [Concomitant]
     Indication: NAUSEA
     Route: 065
     Dates: start: 20110520
  12. ATARAX [Concomitant]
     Indication: PRURITUS
     Route: 065
     Dates: start: 20110627

REACTIONS (3)
  - PNEUMONIA [None]
  - DYSPNOEA [None]
  - HYPOXIA [None]
